FAERS Safety Report 26112352 (Version 1)
Quarter: 2025Q4

REPORT INFORMATION
  Report Type: Spontaneous
  Country: GB (occurrence: GB)
  Receive Date: 20251202
  Receipt Date: 20251202
  Transmission Date: 20260118
  Serious: Yes (Other)
  Sender: SANDOZ
  Company Number: None

PATIENT
  Age: 63 Year
  Sex: Female
  Weight: 94 kg

DRUGS (5)
  1. METHOTREXATE [Suspect]
     Active Substance: METHOTREXATE
     Indication: Product used for unknown indication
     Dosage: 12.5MG (FIVE TABLETS) TO BE TAKEN WEEKLY
     Route: 065
  2. MOUNJARO [Suspect]
     Active Substance: TIRZEPATIDE
     Indication: Product used for unknown indication
     Dosage: 2.5MG/0.6ML SOLUTION FOR INJECTION 2.4ML PRE-FILLED DISPOSABLE DEVICES, PRIVATELY (START DATE: 11-MA
     Route: 065
  3. DOXYCYCLINE [Concomitant]
     Active Substance: DOXYCYCLINE
     Indication: Product used for unknown indication
     Dosage: TWO TO BE TAKEN ON THE FIRST DAY THEN ONE TO BE TAKEN EACH DAY (START DATE: 17-MAR-2025; STOP DATE:2
     Route: 065
  4. MOMETASONE [Concomitant]
     Active Substance: MOMETASONE
     Indication: Product used for unknown indication
     Dosage: TWO SPRAYS TO BE USED IN EACH NOSTRIL TWICE A DAY, THEN REDUCE WHEN SYMPTOMS UNDER CONTROL (START DA
     Route: 065
  5. SOLIFENACIN [Concomitant]
     Active Substance: SOLIFENACIN
     Indication: Product used for unknown indication
     Dosage: ONE TO BE TAKEN EACH DAY, QD (START DATE: 02-MAY-2025)
     Route: 065

REACTIONS (2)
  - Drug interaction [Unknown]
  - Alanine aminotransferase increased [Recovered/Resolved]

NARRATIVE: CASE EVENT DATE: 20250410
